FAERS Safety Report 8431449-8 (Version None)
Quarter: 2012Q2

REPORT INFORMATION
  Report Type: 
  Country: None (occurrence: None)
  Receive Date: 20120604
  Receipt Date: 20120519
  Transmission Date: 20120825
  Serious: Yes (Hospitalization, Other)
  Sender: FDA-Public Use
  Company Number: IPC201205-000221

PATIENT
  Age: 79 Year
  Sex: Female

DRUGS (7)
  1. GLYBURIDE [Suspect]
     Indication: TYPE 2 DIABETES MELLITUS
     Dosage: ORAL
     Route: 048
  2. LORAZEPAM [Suspect]
     Indication: INSOMNIA
     Dosage: 0.5 MG AT BEDTIME
  3. SERTRALINE HYDROCHLORIDE [Suspect]
     Indication: DEPRESSION
     Dosage: 150 MG IN THE MORNING
  4. METOPROLOL TARTRATE [Suspect]
     Indication: HYPERTENSION
  5. MIRTAZAPINE [Suspect]
     Indication: INSOMNIA
  6. MIRTAZAPINE [Suspect]
     Indication: DECREASED APPETITE
  7. MIRTAZAPINE [Suspect]
     Indication: ANXIETY

REACTIONS (16)
  - ANXIETY [None]
  - COGNITIVE DISORDER [None]
  - DRUG INTERACTION [None]
  - BLOOD GLUCOSE INCREASED [None]
  - LOSS OF CONSCIOUSNESS [None]
  - DIABETES MELLITUS INADEQUATE CONTROL [None]
  - WEIGHT DECREASED [None]
  - ANGER [None]
  - INSOMNIA [None]
  - LETHARGY [None]
  - DISEASE RECURRENCE [None]
  - DECREASED APPETITE [None]
  - TREATMENT NONCOMPLIANCE [None]
  - ALCOHOLISM [None]
  - DRUG EFFECT DECREASED [None]
  - BLOOD PRESSURE INCREASED [None]
